FAERS Safety Report 23925139 (Version 1)
Quarter: 2024Q2

REPORT INFORMATION
  Report Type: Report from Study
  Country: IQ (occurrence: IQ)
  Receive Date: 20240531
  Receipt Date: 20240531
  Transmission Date: 20240716
  Serious: Yes (Other)
  Sender: FDA-Public Use
  Company Number: IQ-BAYER-2024A076232

PATIENT
  Age: 63 Year
  Sex: Male

DRUGS (2)
  1. EYLEA [Suspect]
     Active Substance: AFLIBERCEPT
     Indication: Diabetic retinal oedema
     Dosage: INJECT, ^2 PER MONTH^, SOLUTION FOR INJECTION, 40 MG/ML
  2. EYLEA [Suspect]
     Active Substance: AFLIBERCEPT
     Dosage: SECOND, SOLUTION FOR INJECTION, 40MG/ML
     Dates: start: 20240519

REACTIONS (1)
  - Vitrectomy [Recovering/Resolving]

NARRATIVE: CASE EVENT DATE: 20240522
